FAERS Safety Report 7842419-2 (Version None)
Quarter: 2011Q4

REPORT INFORMATION
  Report Type: 
  Country: None (occurrence: None)
  Receive Date: 20111025
  Receipt Date: 20111021
  Transmission Date: 20120403
  Serious: Yes (Life-Threatening)
  Sender: FDA-Public Use
  Company Number: FR-PFIZER INC-2011256427

PATIENT
  Age: 6 Year
  Sex: Male

DRUGS (1)
  1. PROPRANOLOL [Suspect]
     Indication: VARICES OESOPHAGEAL
     Dosage: 20 MG, 2X/DAY
     Route: 048
     Dates: start: 20090101

REACTIONS (1)
  - HYPOGLYCAEMIC COMA [None]
